FAERS Safety Report 7090928-9 (Version None)
Quarter: 2010Q4

REPORT INFORMATION
  Report Type: 
  Country: None (occurrence: None)
  Receive Date: 20101109
  Receipt Date: 20100804
  Transmission Date: 20110411
  Serious: Yes (Death)
  Sender: FDA-Public Use
  Company Number: US-BAYER-201038740NA

PATIENT
  Age: 61 Year
  Sex: Male

DRUGS (1)
  1. TRASYLOL [Suspect]
     Route: 042
     Dates: start: 20060122

REACTIONS (7)
  - ANXIETY [None]
  - AORTIC DISSECTION [None]
  - CARDIO-RESPIRATORY ARREST [None]
  - EMOTIONAL DISTRESS [None]
  - INJURY [None]
  - PAIN [None]
  - STRESS [None]
